FAERS Safety Report 19683148 (Version 4)
Quarter: 2024Q2

REPORT INFORMATION
  Report Type: Spontaneous
  Country: US (occurrence: US)
  Receive Date: 20210810
  Receipt Date: 20240517
  Transmission Date: 20240716
  Serious: No
  Sender: FDA-Public Use
  Company Number: US-HORIZON THERAPEUTICS-HZN-2021-002984

PATIENT

DRUGS (14)
  1. TEPEZZA [Suspect]
     Active Substance: TEPROTUMUMAB-TRBW
     Indication: Endocrine ophthalmopathy
     Dosage: 800 MG, EVERY 3 WEEKS
     Route: 042
     Dates: start: 20200729
  2. TEPEZZA [Suspect]
     Active Substance: TEPROTUMUMAB-TRBW
     Dosage: SECOND TREATMENT-INFUSION
     Route: 042
  3. TEPEZZA [Suspect]
     Active Substance: TEPROTUMUMAB-TRBW
     Dosage: THIRD INFUSION
     Route: 042
  4. TEPEZZA [Suspect]
     Active Substance: TEPROTUMUMAB-TRBW
     Dosage: 5TH INFUSION
     Route: 042
  5. TEPEZZA [Suspect]
     Active Substance: TEPROTUMUMAB-TRBW
     Dosage: UNKNOWN INFUSION (REPORTED  BY PATIENT VIA PALON 07-DEC-2021)
     Route: 042
  6. TEPEZZA [Suspect]
     Active Substance: TEPROTUMUMAB-TRBW
     Dosage: UNKNOWN INFUSION, 800MG IV ONCE FOLLOWED BY 1600MG IV EVERY 3 WEEKS X 7 DOSES
     Route: 042
     Dates: start: 20230609
  7. TEPEZZA [Suspect]
     Active Substance: TEPROTUMUMAB-TRBW
     Dosage: 1740 MG, EVERY 3 WEEKS (THIS IS ROUND 3 START),
     Route: 042
     Dates: start: 20230609
  8. TEPEZZA [Suspect]
     Active Substance: TEPROTUMUMAB-TRBW
     Dosage: UNK INFUSION (3RD COURSE)
     Route: 042
     Dates: start: 20230720
  9. METHIMAZOLE [Concomitant]
     Active Substance: METHIMAZOLE
     Indication: Product used for unknown indication
     Dosage: 10 MG, DAILY
     Route: 065
  10. TIMOLOL [Concomitant]
     Active Substance: TIMOLOL
     Indication: Product used for unknown indication
     Dosage: UNK
     Route: 065
  11. ATENOLOL [Concomitant]
     Active Substance: ATENOLOL
     Indication: Product used for unknown indication
     Dosage: 30 MG, DAILY
     Route: 065
  12. PREDNISONE [Concomitant]
     Active Substance: PREDNISONE
  13. SIMVASTATIN [Concomitant]
     Active Substance: SIMVASTATIN
  14. TADALAFIL [Concomitant]
     Active Substance: TADALAFIL

REACTIONS (20)
  - Somnolence [Unknown]
  - Joint stiffness [Not Recovered/Not Resolved]
  - Abdominal discomfort [Recovering/Resolving]
  - Impaired work ability [Not Recovered/Not Resolved]
  - Musculoskeletal stiffness [Unknown]
  - Heart rate decreased [Not Recovered/Not Resolved]
  - Myalgia [Not Recovered/Not Resolved]
  - Hypoacusis [Not Recovered/Not Resolved]
  - Alopecia [Not Recovered/Not Resolved]
  - Fatigue [Not Recovered/Not Resolved]
  - Diarrhoea [Recovering/Resolving]
  - Muscle spasms [Not Recovered/Not Resolved]
  - Dry skin [Not Recovered/Not Resolved]
  - Vision blurred [Recovered/Resolved]
  - Exophthalmos [Unknown]
  - Eye swelling [Unknown]
  - Condition aggravated [Unknown]
  - Lacrimation increased [Not Recovered/Not Resolved]
  - Eye discharge [Recovering/Resolving]
  - Off label use [Unknown]

NARRATIVE: CASE EVENT DATE: 20211207
